FAERS Safety Report 20889280 (Version 2)
Quarter: 2022Q2

REPORT INFORMATION
  Report Type: Spontaneous
  Country: DE (occurrence: DE)
  Receive Date: 20220530
  Receipt Date: 20220627
  Transmission Date: 20220721
  Serious: Yes (Other)
  Sender: FDA-Public Use
  Company Number: DE-BIOGEN-2022BI01127204

PATIENT
  Age: 33 Year
  Sex: Male
  Weight: 82 kg

DRUGS (2)
  1. TECFIDERA [Suspect]
     Active Substance: DIMETHYL FUMARATE
     Indication: Relapsing-remitting multiple sclerosis
     Dosage: MAINTENANCE DOSE.
     Route: 048
     Dates: start: 2019
  2. COMIRNATY [Suspect]
     Active Substance: TOZINAMERAN
     Indication: Product used for unknown indication
     Route: 065

REACTIONS (1)
  - Immunisation reaction [Recovered/Resolved with Sequelae]

NARRATIVE: CASE EVENT DATE: 20211224
